FAERS Safety Report 6835363-0 (Version None)
Quarter: 2010Q3

REPORT INFORMATION
  Report Type: 
  Country: None (occurrence: None)
  Receive Date: 20100707
  Receipt Date: 20100622
  Transmission Date: 20110219
  Serious: Yes (Other)
  Sender: FDA-Public Use
  Company Number: AUR-APL-2010-01634

PATIENT
  Age: 56 Year
  Sex: Female
  Weight: 92.5338 kg

DRUGS (4)
  1. METOPROLOL TARTRATE [Suspect]
     Indication: MYOCARDIAL INFARCTION
     Dosage: 50MG, BID, ORAL
     Route: 048
     Dates: start: 20050101
  2. LIPITOR [Suspect]
     Indication: MYOCARDIAL INFARCTION
     Dosage: 20MG, DAILY, ORAL
     Route: 048
     Dates: start: 20050101, end: 20100620
  3. OMEPRAZOLE [Suspect]
     Indication: GASTROOESOPHAGEAL REFLUX DISEASE
     Dosage: 20MG-BID-ORAL
     Route: 048
  4. SYNTHROID [Concomitant]

REACTIONS (13)
  - ABDOMINAL PAIN UPPER [None]
  - ANXIETY [None]
  - APHAGIA [None]
  - CHEST PAIN [None]
  - DEPRESSION [None]
  - DYSPEPSIA [None]
  - HYPERSOMNIA [None]
  - INSOMNIA [None]
  - LOSS OF EMPLOYMENT [None]
  - MALAISE [None]
  - MIGRAINE [None]
  - PANIC ATTACK [None]
  - SLEEP APNOEA SYNDROME [None]
